FAERS Safety Report 20186650 (Version 22)
Quarter: 2023Q1

REPORT INFORMATION
  Report Type: Report from Study
  Country: JP (occurrence: JP)
  Receive Date: 20211215
  Receipt Date: 20230303
  Transmission Date: 20230418
  Serious: Yes (Hospitalization, Other)
  Sender: FDA-Public Use
  Company Number: JP-BRISTOL-MYERS SQUIBB COMPANY-BMS-2021-082575

PATIENT
  Age: 53 Year
  Sex: Female
  Weight: 58.4 kg

DRUGS (23)
  1. YERVOY [Suspect]
     Active Substance: IPILIMUMAB
     Indication: Metastatic renal cell carcinoma
     Dosage: 1 MG/KG
     Route: 041
     Dates: start: 20210217, end: 20210217
  2. YERVOY [Suspect]
     Active Substance: IPILIMUMAB
     Route: 041
     Dates: start: 20210519, end: 20210519
  3. YERVOY [Suspect]
     Active Substance: IPILIMUMAB
     Route: 041
     Dates: start: 20210609, end: 20210609
  4. YERVOY [Suspect]
     Active Substance: IPILIMUMAB
     Dosage: 1 MG/KG
     Route: 041
     Dates: start: 20210127, end: 20210127
  5. OPDIVO [Suspect]
     Active Substance: NIVOLUMAB
     Indication: Metastatic renal cell carcinoma
     Route: 041
     Dates: start: 20210217, end: 20210217
  6. OPDIVO [Suspect]
     Active Substance: NIVOLUMAB
     Route: 041
     Dates: start: 20210519, end: 20210519
  7. OPDIVO [Suspect]
     Active Substance: NIVOLUMAB
     Route: 041
     Dates: start: 20210609, end: 20210609
  8. OPDIVO [Suspect]
     Active Substance: NIVOLUMAB
     Route: 041
     Dates: start: 20210825, end: 20210825
  9. OPDIVO [Suspect]
     Active Substance: NIVOLUMAB
     Route: 041
     Dates: start: 20210922, end: 20210922
  10. OPDIVO [Suspect]
     Active Substance: NIVOLUMAB
     Route: 041
     Dates: start: 20210127, end: 20210127
  11. CALONAL [Concomitant]
     Active Substance: ACETAMINOPHEN
     Indication: Product used for unknown indication
  12. CALONAL [Concomitant]
     Active Substance: ACETAMINOPHEN
  13. CALONAL [Concomitant]
     Active Substance: ACETAMINOPHEN
  14. CALONAL [Concomitant]
     Active Substance: ACETAMINOPHEN
  15. CALONAL [Concomitant]
     Active Substance: ACETAMINOPHEN
  16. CALONAL [Concomitant]
     Active Substance: ACETAMINOPHEN
  17. CALONAL [Concomitant]
     Active Substance: ACETAMINOPHEN
  18. LOXOPROFEN SODIUM [Concomitant]
     Active Substance: LOXOPROFEN SODIUM
     Indication: Product used for unknown indication
  19. LOXOPROFEN SODIUM [Concomitant]
     Active Substance: LOXOPROFEN SODIUM
  20. LOXOPROFEN SODIUM [Concomitant]
     Active Substance: LOXOPROFEN SODIUM
  21. LOXOPROFEN SODIUM [Concomitant]
     Active Substance: LOXOPROFEN SODIUM
  22. AMOXICILLIN\CLARITHROMYCIN\ESOMEPRAZOLE [Concomitant]
     Active Substance: AMOXICILLIN\CLARITHROMYCIN\ESOMEPRAZOLE
     Indication: Product used for unknown indication
  23. AMOXICILLIN\CLARITHROMYCIN\ESOMEPRAZOLE [Concomitant]
     Active Substance: AMOXICILLIN\CLARITHROMYCIN\ESOMEPRAZOLE

REACTIONS (3)
  - Fulminant type 1 diabetes mellitus [Not Recovered/Not Resolved]
  - Secondary adrenocortical insufficiency [Recovering/Resolving]
  - Amylase increased [Recovered/Resolved]

NARRATIVE: CASE EVENT DATE: 20210310
